FAERS Safety Report 7611603-5 (Version None)
Quarter: 2011Q3

REPORT INFORMATION
  Report Type: 
  Country: None (occurrence: None)
  Receive Date: 20110715
  Receipt Date: 20110711
  Transmission Date: 20111222
  Serious: Yes (Hospitalization)
  Sender: FDA-Public Use
  Company Number: FR-GLAXOSMITHKLINE-B0732093A

PATIENT
  Sex: Male

DRUGS (5)
  1. REQUIP [Suspect]
     Indication: PARKINSON'S DISEASE
     Dosage: 3MG PER DAY
     Route: 048
     Dates: end: 20100501
  2. TERCIAN [Suspect]
     Indication: PRODUCT USED FOR UNKNOWN INDICATION
     Dosage: 3UNIT PER DAY
     Route: 048
     Dates: end: 20100501
  3. OXAZEPAM [Concomitant]
     Dosage: 40MG PER DAY
     Route: 048
  4. ESCITALOPRAM OXALATE [Concomitant]
     Dosage: 10MG PER DAY
     Route: 048
  5. MODOPAR [Concomitant]
     Dosage: 375MG PER DAY
     Route: 048

REACTIONS (5)
  - HALLUCINATION, VISUAL [None]
  - ABNORMAL BEHAVIOUR [None]
  - DISORIENTATION [None]
  - INCOHERENT [None]
  - EXTRAPYRAMIDAL DISORDER [None]
